FAERS Safety Report 17283494 (Version 1)
Quarter: 2020Q1

REPORT INFORMATION
  Report Type: Spontaneous
  Country: US (occurrence: US)
  Receive Date: 20200117
  Receipt Date: 20200117
  Transmission Date: 20200409
  Serious: Yes (Other)
  Sender: FDA-Public Use
  Company Number: None

PATIENT
  Age: 52 Year
  Sex: Male
  Weight: 96.75 kg

DRUGS (5)
  1. XOLAIR [Concomitant]
     Active Substance: OMALIZUMAB
     Dates: start: 20180717, end: 20200117
  2. PULMICORT 0.25 MG/2 ML [Concomitant]
     Dates: start: 20171222, end: 20200117
  3. ALBUTEROL SULFATE 2.5 MG/0.5 ML [Concomitant]
     Dates: start: 20180831, end: 20200117
  4. YUPELRI [Suspect]
     Active Substance: REVEFENACIN
     Indication: CHRONIC OBSTRUCTIVE PULMONARY DISEASE
     Route: 055
     Dates: start: 20200110, end: 20200114
  5. ANORO ELLIPTA 62.5 UGM-25 UGM [Concomitant]
     Dates: start: 20191203, end: 20200117

REACTIONS (2)
  - Dyspnoea [None]
  - Chest pain [None]

NARRATIVE: CASE EVENT DATE: 20200112
